FAERS Safety Report 5923104-0 (Version None)
Quarter: 2008Q4

REPORT INFORMATION
  Report Type: 
  Country: None (occurrence: None)
  Receive Date: 20081018
  Receipt Date: 20081014
  Transmission Date: 20090506
  Serious: Yes (Hospitalization)
  Sender: FDA-Public Use
  Company Number: DK-PFIZER INC-2008086456

PATIENT

DRUGS (1)
  1. MEDROL [Suspect]
     Dosage: TEXT:4 MG
     Route: 048

REACTIONS (1)
  - MEDICATION ERROR [None]
